FAERS Safety Report 9374800 (Version 3)
Quarter: 2013Q4

REPORT INFORMATION
  Report Type: Spontaneous
  Country: DK (occurrence: DK)
  Receive Date: 20130628
  Receipt Date: 20131219
  Transmission Date: 20140711
  Serious: Yes (Other)
  Sender: FDA-Public Use
  Company Number: DK-SANOFI-AVENTIS-2013SA063726

PATIENT
  Age: 63 Year
  Sex: Male
  Weight: 88 kg

DRUGS (5)
  1. LANTUS SOLOSTAR [Suspect]
     Indication: DIABETES MELLITUS
     Dosage: DOSIS: 43IE/ML DAGLIGT, STYRKE: 100 E/ML
     Route: 058
     Dates: start: 20110630
  2. ZARATOR [Suspect]
     Indication: HYPERCHOLESTEROLAEMIA
     Dosage: STYRKE: 40 MG
     Route: 065
     Dates: start: 20111123, end: 201302
  3. SOLOSTAR [Concomitant]
     Indication: DEVICE THERAPY
     Dates: start: 20110630
  4. ELTROXIN [Concomitant]
     Indication: MYXOEDEMA
     Dosage: 13?EVERY?1  [WEEKS]
     Dates: start: 1983
  5. ACETYLSALICYLIC ACID [Concomitant]
     Indication: ANTICOAGULANT THERAPY
     Dates: start: 20110911

REACTIONS (5)
  - Hepatitis A [Recovering/Resolving]
  - Malaise [Recovered/Resolved]
  - Dizziness [Recovering/Resolving]
  - Fatigue [Recovering/Resolving]
  - Asthenia [Recovering/Resolving]
